FAERS Safety Report 6836278-4 (Version None)
Quarter: 2010Q3

REPORT INFORMATION
  Report Type: 
  Country: None (occurrence: None)
  Receive Date: 20100712
  Receipt Date: 20100712
  Transmission Date: 20110219
  Serious: No
  Sender: FDA-Public Use
  Company Number: None

PATIENT
  Sex: Male
  Weight: 80.5 kg

DRUGS (4)
  1. MERCAPTOPURINE [Suspect]
     Dosage: 6525 MG
     Dates: end: 20100328
  2. METHOTREXATE [Suspect]
     Dosage: 250 MG
     Dates: end: 20100322
  3. PREDNISONE [Suspect]
     Dosage: 1200 MG
     Dates: end: 20100305
  4. VINCRISTINE SULFATE [Suspect]
     Dosage: 6 MG
     Dates: end: 20100301

REACTIONS (2)
  - ACTIVATED PARTIAL THROMBOPLASTIN TIME PROLONGED [None]
  - JAUNDICE [None]
